FAERS Safety Report 23358734 (Version 1)
Quarter: 2024Q1

REPORT INFORMATION
  Report Type: Spontaneous
  Country: BE (occurrence: BE)
  Receive Date: 20240102
  Receipt Date: 20240102
  Transmission Date: 20240409
  Serious: Yes (Other)
  Sender: FDA-Public Use
  Company Number: BE-009507513-2312BEL005553

PATIENT
  Sex: Female

DRUGS (3)
  1. CARBOPLATIN [Suspect]
     Active Substance: CARBOPLATIN
     Indication: Triple negative breast cancer
     Dosage: ADJ WITH CHEMO ( CARBO + TAXOL ) AND PEMBRO
  2. KEYTRUDA [Suspect]
     Active Substance: PEMBROLIZUMAB
     Indication: Triple negative breast cancer
     Dosage: 4 CYCLES -ADJ WITH CHEMO ( CARBO + TAXOL ) AND PEMBRO?SOLUTION FOR INJECTION
  3. TAXOL [Suspect]
     Active Substance: PACLITAXEL
     Indication: Triple negative breast cancer

REACTIONS (4)
  - Pneumonitis [Unknown]
  - Breast conserving surgery [Unknown]
  - Radiotherapy [Unknown]
  - Skin toxicity [Unknown]
